FAERS Safety Report 23287364 (Version 1)
Quarter: 2023Q4

REPORT INFORMATION
  Report Type: Spontaneous
  Country: US (occurrence: None)
  Receive Date: 20231210
  Receipt Date: 20231210
  Transmission Date: 20240109
  Serious: Yes (Other)
  Sender: FDA-Public Use
  Company Number: None

PATIENT
  Age: 74 Year
  Sex: Female
  Weight: 69.75 kg

DRUGS (3)
  1. PAXLOVID [Suspect]
     Active Substance: NIRMATRELVIR\RITONAVIR
     Indication: COVID-19
  2. BROMPHENIRAMINE, PSEUDOEPHEDRINE, DEXTROMETHORPHAN [Concomitant]
     Active Substance: BROMPHENIRAMINE MALEATE\DEXTROMETHORPHAN HYDROBROMIDE\PSEUDOEPHEDRINE HYDROCHLORIDE
  3. Naldadol [Concomitant]

REACTIONS (6)
  - Erythema [None]
  - Swelling face [None]
  - Rash [None]
  - Chills [None]
  - Pain [None]
  - Erythema [None]

NARRATIVE: CASE EVENT DATE: 20231209
